FAERS Safety Report 5128384-X (Version None)
Quarter: 2006Q4

REPORT INFORMATION
  Report Type: 
  Country: None (occurrence: None)
  Receive Date: 20061011
  Receipt Date: 20060925
  Transmission Date: 20070319
  Serious: Yes (Life-Threatening, Hospitalization)
  Sender: FDA-Public Use
  Company Number: US018167

PATIENT
  Age: 47 Year
  Sex: Female
  Weight: 81.6475 kg

DRUGS (8)
  1. ACTIQ [Suspect]
     Indication: HERNIA PAIN
     Dosage: 1200 UG BID BUCCAL
     Route: 002
     Dates: start: 20050101, end: 20050501
  2. VICODIN [Suspect]
     Indication: PAIN
     Dosage: 10/325MG
     Dates: start: 20030101, end: 20060401
  3. FLEXERIL [Suspect]
     Dosage: 10 MG TID ORAL
     Route: 048
     Dates: end: 20060401
  4. MORPHINE [Suspect]
     Indication: PAIN
     Dosage: 120 MG TID ORAL
     Route: 048
     Dates: end: 20060401
  5. MORPHINE [Suspect]
     Indication: PAIN
     Dosage: 120 MG BID ORAL
     Route: 048
     Dates: start: 20060501
  6. MORPHINE [Suspect]
     Indication: PAIN
     Dosage: 60 MG TID ORAL
     Route: 048
     Dates: end: 20060401
  7. MORPHINE [Suspect]
     Indication: PAIN
     Dosage: 60 MG BID ORAL
     Route: 048
     Dates: start: 20060501
  8. DALMANE [Suspect]
     Indication: INSOMNIA
     Dosage: 30 MG QHS ORAL
     Route: 048
     Dates: end: 20060401

REACTIONS (14)
  - AMNESIA [None]
  - BLOOD PRESSURE FLUCTUATION [None]
  - CIRCULATORY COLLAPSE [None]
  - DEHYDRATION [None]
  - DIABETES MELLITUS [None]
  - DRUG INTOLERANCE [None]
  - DRUG WITHDRAWAL SYNDROME [None]
  - ELECTROCARDIOGRAM ABNORMAL [None]
  - GASTROINTESTINAL HAEMORRHAGE [None]
  - INFLUENZA [None]
  - MALAISE [None]
  - STUPOR [None]
  - SYNCOPE [None]
  - VOMITING [None]
